FAERS Safety Report 5347177-1 (Version None)
Quarter: 2007Q2

REPORT INFORMATION
  Report Type: 
  Country: None (occurrence: None)
  Receive Date: 20070606
  Receipt Date: 20070529
  Transmission Date: 20071010
  Serious: Yes (Other)
  Sender: FDA-Public Use
  Company Number: PHEH2007US08020

PATIENT
  Age: 59 Year
  Sex: Female

DRUGS (8)
  1. ZELNORM [Suspect]
     Indication: BOWEL MOVEMENT IRREGULARITY
     Dates: start: 20050101, end: 20070413
  2. BONIVA [Concomitant]
  3. LISINOPRIL [Concomitant]
  4. REGLAN [Concomitant]
  5. LEVOXYL [Concomitant]
  6. SINGULAIR [Concomitant]
  7. PROTONIX [Concomitant]
  8. LIPITOR [Concomitant]

REACTIONS (4)
  - BLINDNESS [None]
  - FOREIGN BODY SENSATION IN EYES [None]
  - OPTIC NERVE INFARCTION [None]
  - VISION BLURRED [None]
